FAERS Safety Report 18304987 (Version 2)
Quarter: 2021Q1

REPORT INFORMATION
  Report Type: Other
  Country: NL (occurrence: NL)
  Receive Date: 20200924
  Receipt Date: 20210218
  Transmission Date: 20210419
  Serious: Yes (Death, Hospitalization)
  Sender: FDA-Public Use
  Company Number: NL-ROCHE-2541424

PATIENT
  Age: 72 Year
  Sex: Female
  Weight: 67.5 kg

DRUGS (13)
  1. ATEZOLIZUMAB. [Suspect]
     Active Substance: ATEZOLIZUMAB
     Indication: NON-SMALL CELL LUNG CANCER METASTATIC
     Dosage: ON 11/DEC/2019 AND 08/JAN/2020, PATIENT RECEIVED MOST RECENT DOSES OF ATEZOLIZUMAB
     Route: 042
     Dates: start: 20191113
  2. MACROGOL [Concomitant]
     Active Substance: POLYETHYLENE GLYCOLS
     Dates: start: 20191105
  3. METOCLOPRAMIDE. [Concomitant]
     Active Substance: METOCLOPRAMIDE
     Indication: PROPHYLAXIS
     Dosage: PRN AS NEEDED
     Dates: start: 20191113
  4. SLOW K [Concomitant]
     Active Substance: POTASSIUM CHLORIDE
     Indication: HYPOKALAEMIA
     Dates: start: 20200108
  5. OXYCODONE [Concomitant]
     Active Substance: OXYCODONE
     Dates: start: 20190930
  6. NACL [Concomitant]
     Active Substance: SODIUM CHLORIDE
     Dates: start: 20200304, end: 20200307
  7. NADROPARINA [Concomitant]
     Dates: start: 20200304, end: 20200309
  8. DOCETAXEL. [Concomitant]
     Active Substance: DOCETAXEL
     Dosage: 1 ST CYCLE
     Dates: start: 20200529
  9. SIMVASTATINE [Concomitant]
     Active Substance: SIMVASTATIN
  10. PARACETAMOL [Concomitant]
     Active Substance: ACETAMINOPHEN
     Dosage: PRN AS NEEDED
     Dates: start: 20191105
  11. KALIUMCHLORIDE [Concomitant]
     Dates: start: 20200305, end: 20200309
  12. OXAZEPAM. [Concomitant]
     Active Substance: OXAZEPAM
     Indication: PROPHYLAXIS
  13. PERINDOPRIL [Concomitant]
     Active Substance: PERINDOPRIL

REACTIONS (1)
  - Immune-mediated enterocolitis [Fatal]

NARRATIVE: CASE EVENT DATE: 20200101
